FAERS Safety Report 15161587 (Version 1)
Quarter: 2018Q3

REPORT INFORMATION
  Report Type: Report from Study
  Country: US (occurrence: US)
  Receive Date: 20180718
  Receipt Date: 20180718
  Transmission Date: 20181010
  Serious: No
  Sender: FDA-Public Use
  Company Number: US-AMGEN-USASP2014014672

PATIENT
  Age: 63 Year
  Sex: Female

DRUGS (4)
  1. ADVIL [Concomitant]
     Active Substance: IBUPROFEN
     Dosage: 200 MG, UNK
  2. ASA [Concomitant]
     Active Substance: ASPIRIN
     Dosage: LOW DOSE 81 MG, EC
  3. ENBREL [Suspect]
     Active Substance: ETANERCEPT
     Indication: PRODUCT USED FOR UNKNOWN INDICATION
     Dosage: 50 MG, QWK
     Route: 058
  4. PREVACID [Concomitant]
     Active Substance: LANSOPRAZOLE
     Dosage: 30 MG, STB

REACTIONS (6)
  - Rheumatoid arthritis [Unknown]
  - Increased tendency to bruise [Unknown]
  - Arthralgia [Unknown]
  - Limb injury [Unknown]
  - Platelet count decreased [Unknown]
  - Localised infection [Unknown]

NARRATIVE: CASE EVENT DATE: 201312
